FAERS Safety Report 15154024 (Version 1)
Quarter: 2018Q3

REPORT INFORMATION
  Report Type: Spontaneous
  Country: US (occurrence: US)
  Receive Date: 20180619
  Receipt Date: 20180619
  Transmission Date: 20181010
  Serious: Yes (Other)
  Sender: FDA-Public Use
  Company Number: None

PATIENT
  Age: 74 Year
  Sex: Female
  Weight: 67.5 kg

DRUGS (5)
  1. LYRICA [Suspect]
     Active Substance: PREGABALIN
     Indication: FIBROMYALGIA
     Dosage: ?          QUANTITY:1 CAPSULE(S);?
     Route: 048
     Dates: start: 20180614, end: 20180616
  2. ALBUTEROL. [Concomitant]
     Active Substance: ALBUTEROL
  3. FLUTICASONE. [Concomitant]
     Active Substance: FLUTICASONE
  4. FEXOFENADINE [Concomitant]
     Active Substance: FEXOFENADINE\FEXOFENADINE HYDROCHLORIDE
  5. ASPIRIN. [Concomitant]
     Active Substance: ASPIRIN

REACTIONS (7)
  - Vision blurred [None]
  - Gait disturbance [None]
  - Somnolence [None]
  - Rash [None]
  - Dizziness [None]
  - Disturbance in attention [None]
  - Blister [None]

NARRATIVE: CASE EVENT DATE: 20180614
